FAERS Safety Report 21676510 (Version 1)
Quarter: 2022Q4

REPORT INFORMATION
  Report Type: Report from Study
  Country: GB (occurrence: GB)
  Receive Date: 20221202
  Receipt Date: 20221202
  Transmission Date: 20230113
  Serious: Yes (Hospitalization, Other)
  Sender: FDA-Public Use
  Company Number: GB-LEO Pharma-347227

PATIENT
  Age: 59 Year
  Sex: Male

DRUGS (2)
  1. BRODALUMAB [Suspect]
     Active Substance: BRODALUMAB
     Indication: Psoriasis
     Dosage: 210 MG/1.5ML AT WEEKS 0, 1, AND 2 FOLLOWED BY EVERY 2 WEEKS
     Route: 058
     Dates: start: 202007
  2. BRODALUMAB [Suspect]
     Active Substance: BRODALUMAB
     Dosage: 210 MG/1.5ML AT WEEKS 0, 1, AND 2 FOLLOWED BY EVERY 2 WEEKS
     Route: 058

REACTIONS (4)
  - Cardiac operation [Unknown]
  - Pneumonia [Unknown]
  - Psoriasis [Not Recovered/Not Resolved]
  - Product dose omission issue [Unknown]

NARRATIVE: CASE EVENT DATE: 20221001
